FAERS Safety Report 16033859 (Version 1)
Quarter: 2019Q2

REPORT INFORMATION
  Report Type: Spontaneous
  Country: CA (occurrence: CA)
  Receive Date: 20190305
  Receipt Date: 20190305
  Transmission Date: 20190711
  Serious: Yes (Hospitalization)
  Sender: FDA-Public Use
  Company Number: None

PATIENT
  Age: 82 Year
  Sex: Female

DRUGS (7)
  1. VITAMIN D 800 IU PO DAILY [Concomitant]
  2. FUROSEMIDE 40 MG PO DAILY [Concomitant]
  3. CALCIUM CARBONATE 1200 MG PO DAILY [Concomitant]
  4. ESCITALOPRAM 10 MG DAILY [Concomitant]
  5. WARFARIN [Suspect]
     Active Substance: WARFARIN
     Indication: ATRIAL FIBRILLATION
     Route: 048
  6. AMLODIPINE 10 MG PO DAILY [Concomitant]
  7. METOPROLOL 25 MG PO BID [Concomitant]

REACTIONS (9)
  - Tachycardia [None]
  - Intra-abdominal haemorrhage [None]
  - Malaise [None]
  - Melaena [None]
  - Mental status changes [None]
  - Hypotension [None]
  - Abdominal pain [None]
  - International normalised ratio increased [None]
  - Dehydration [None]

NARRATIVE: CASE EVENT DATE: 20190108
